FAERS Safety Report 25951042 (Version 1)
Quarter: 2025Q4

REPORT INFORMATION
  Report Type: Spontaneous
  Country: EU (occurrence: EU)
  Receive Date: 20251023
  Receipt Date: 20251023
  Transmission Date: 20260117
  Serious: Yes (Hospitalization)
  Sender: UCB
  Company Number: None

PATIENT
  Age: 72 Year
  Weight: 106 kg

DRUGS (1)
  1. ZILBRYSQ [Suspect]
     Active Substance: ZILUCOPLAN
     Indication: Myasthenia gravis
     Dosage: 32.5 MILLIGRAM (DAILY)

REACTIONS (2)
  - Scleroderma-like reaction [Recovering/Resolving]
  - Eosinophilia [Recovered/Resolved]
